FAERS Safety Report 6503673-2 (Version None)
Quarter: 2009Q4

REPORT INFORMATION
  Report Type: 
  Country: None (occurrence: None)
  Receive Date: 20091217
  Receipt Date: 20091209
  Transmission Date: 20100525
  Serious: Yes (Hospitalization)
  Sender: FDA-Public Use
  Company Number: JP-NOVOPROD-290743

PATIENT
  Age: 75 Year
  Sex: Male

DRUGS (4)
  1. NOVORAPID CHU FLEXPEN [Suspect]
     Indication: DIABETES MELLITUS
     Dosage: 44 IU, QD
     Route: 058
  2. METFORMIN HCL [Concomitant]
     Dosage: 750 MG, QD
  3. ACARBOSE [Concomitant]
     Dosage: 300 MG, QD
  4. HUMALOG [Concomitant]

REACTIONS (3)
  - ANTI-INSULIN ANTIBODY POSITIVE [None]
  - HYPERGLYCAEMIA [None]
  - HYPOGLYCAEMIA [None]
